FAERS Safety Report 12692068 (Version 1)
Quarter: 2016Q3

REPORT INFORMATION
  Report Type: Spontaneous
  Country: US (occurrence: US)
  Receive Date: 20160827
  Receipt Date: 20160827
  Transmission Date: 20161109
  Serious: No
  Sender: FDA-Public Use
  Company Number: US-ASTRAZENECA-2016SE91215

PATIENT
  Sex: Male

DRUGS (1)
  1. BYETTA [Suspect]
     Active Substance: EXENATIDE
     Indication: WEIGHT DECREASED
     Dosage: 5UG
     Route: 058
     Dates: start: 20160823

REACTIONS (2)
  - Product use issue [Unknown]
  - Rash generalised [Unknown]

NARRATIVE: CASE EVENT DATE: 20160823
